FAERS Safety Report 6455224-9 (Version None)
Quarter: 2009Q4

REPORT INFORMATION
  Report Type: 
  Country: None (occurrence: None)
  Receive Date: 20091124
  Receipt Date: 20091014
  Transmission Date: 20100525
  Serious: Yes (Other)
  Sender: FDA-Public Use
  Company Number: US-AMGEN-US369296

PATIENT
  Sex: Female
  Weight: 49 kg

DRUGS (2)
  1. NPLATE [Suspect]
     Indication: IDIOPATHIC THROMBOCYTOPENIC PURPURA
     Route: 058
     Dates: start: 20090701, end: 20091007
  2. AMICAR [Concomitant]
     Route: 065

REACTIONS (1)
  - DRUG INEFFECTIVE [None]
